FAERS Safety Report 7571797-7 (Version None)
Quarter: 2011Q2

REPORT INFORMATION
  Report Type: 
  Country: None (occurrence: None)
  Receive Date: 20110624
  Receipt Date: 20110615
  Transmission Date: 20111010
  Serious: Yes (Other)
  Sender: FDA-Public Use
  Company Number: US-CEPHALON-2011003104

PATIENT
  Sex: Male
  Weight: 82 kg

DRUGS (16)
  1. ACTIQ [Suspect]
     Route: 002
     Dates: start: 20110501
  2. ULTRAM [Concomitant]
     Dates: start: 20080101
  3. ACTIQ [Suspect]
     Indication: PAIN
     Route: 002
     Dates: start: 20081101, end: 20110501
  4. TRAZODONE HCL [Concomitant]
     Dates: start: 20020101
  5. MARINOL [Concomitant]
     Indication: PAIN
     Dates: start: 20100101
  6. MARINOL [Concomitant]
     Indication: WEIGHT INCREASED
  7. MORPHINE [Concomitant]
     Dates: start: 20100101
  8. TRUVADDA [Concomitant]
     Dates: start: 20020101
  9. LISINOPRIL [Concomitant]
     Indication: BLOOD PRESSURE
     Dates: start: 20090101
  10. AMLODIPINE [Concomitant]
     Indication: BLOOD PRESSURE
     Dates: start: 20090101
  11. BUPROPION HCL [Concomitant]
     Indication: BLOOD PRESSURE
     Dates: start: 20100101
  12. FENTORA [Suspect]
     Indication: PAIN
     Route: 002
     Dates: start: 20110501, end: 20110501
  13. VICOPROFEN [Concomitant]
     Dates: start: 20000101
  14. SOMA [Concomitant]
     Dates: start: 20000101
  15. TESTOSTERONE [Concomitant]
     Dates: start: 20050101
  16. BYSTOLIC [Concomitant]
     Indication: BLOOD PRESSURE
     Dates: start: 20090101

REACTIONS (3)
  - DENTAL CARIES [None]
  - TOOTH EXTRACTION [None]
  - OROPHARYNGEAL BLISTERING [None]
